FAERS Safety Report 6889767-0 (Version None)
Quarter: 2010Q3

REPORT INFORMATION
  Report Type: 
  Country: None (occurrence: None)
  Receive Date: 20100730
  Receipt Date: 20080430
  Transmission Date: 20110219
  Serious: No
  Sender: FDA-Public Use
  Company Number: US-PFIZER INC-2008038050

PATIENT
  Sex: Female

DRUGS (3)
  1. LIPITOR [Suspect]
  2. PANTOPRAZOLE [Suspect]
     Dates: start: 20070101
  3. ALL OTHER THERAPEUTIC PRODUCTS [Concomitant]

REACTIONS (1)
  - HEPATIC ENZYME INCREASED [None]
